FAERS Safety Report 13805554 (Version 2)
Quarter: 2017Q3

REPORT INFORMATION
  Report Type: Spontaneous
  Country: US (occurrence: US)
  Receive Date: 20170728
  Receipt Date: 20170728
  Transmission Date: 20171127
  Serious: Yes (Death)
  Sender: FDA-Public Use
  Company Number: US-PFIZER INC-2017321798

PATIENT
  Sex: Male
  Weight: 3.5 kg

DRUGS (1)
  1. MORPHINE SULFATE. [Suspect]
     Active Substance: MORPHINE SULFATE
     Indication: PAIN
     Dosage: UNK

REACTIONS (6)
  - Neonatal respiratory distress syndrome [Fatal]
  - Coagulopathy [Fatal]
  - Hypotension [Fatal]
  - Condition aggravated [Fatal]
  - Persistent foetal circulation [Fatal]
  - Multiple organ dysfunction syndrome [Fatal]
